FAERS Safety Report 8359377-7 (Version None)
Quarter: 2012Q2

REPORT INFORMATION
  Report Type: 
  Country: None (occurrence: None)
  Receive Date: 20120515
  Receipt Date: 20120511
  Transmission Date: 20120825
  Serious: No
  Sender: FDA-Public Use
  Company Number: US-PFIZER INC-2012062187

PATIENT
  Sex: Female
  Weight: 82.54 kg

DRUGS (3)
  1. LOTENSIN [Suspect]
     Indication: HYPERTENSION
     Dosage: 20 MG, DAILY
  2. LYRICA [Suspect]
     Indication: NEUROPATHY PERIPHERAL
     Dosage: UNK
     Route: 048
     Dates: start: 20100101
  3. LANTUS [Concomitant]
     Indication: DIABETES MELLITUS
     Dosage: UNK

REACTIONS (1)
  - BLOOD TRIGLYCERIDES INCREASED [None]
